FAERS Safety Report 7938493-5 (Version None)
Quarter: 2011Q4

REPORT INFORMATION
  Report Type: 
  Country: None (occurrence: None)
  Receive Date: 20111123
  Receipt Date: 20100723
  Transmission Date: 20120403
  Serious: Yes (Hospitalization, Other)
  Sender: FDA-Public Use
  Company Number: PHHY2010TW43268

PATIENT
  Sex: Female

DRUGS (1)
  1. GLEEVEC [Suspect]
     Indication: GASTROINTESTINAL STROMAL TUMOUR
     Dosage: 400 MG, UNK
     Route: 048
     Dates: start: 20100601

REACTIONS (11)
  - INFECTION [None]
  - ANORECTAL DISCOMFORT [None]
  - POOR QUALITY SLEEP [None]
  - PYREXIA [None]
  - DIARRHOEA [None]
  - OEDEMA [None]
  - VOMITING [None]
  - ASTHENIA [None]
  - PLEURAL EFFUSION [None]
  - LUNG INFECTION [None]
  - ABNORMAL BEHAVIOUR [None]
